FAERS Safety Report 11246998 (Version 3)
Quarter: 2015Q3

REPORT INFORMATION
  Report Type: Report from Study
  Country: CA (occurrence: CA)
  Receive Date: 20150708
  Receipt Date: 20150817
  Transmission Date: 20151125
  Serious: Yes (Other)
  Sender: FDA-Public Use
  Company Number: CA-JNJFOC-20150623328

PATIENT
  Age: 69 Year
  Sex: Female
  Weight: 73 kg

DRUGS (10)
  1. REMICADE [Suspect]
     Active Substance: INFLIXIMAB
     Indication: RHEUMATOID ARTHRITIS
     Dosage: 52 WEEKS
     Route: 042
     Dates: start: 2000
  2. REMICADE [Suspect]
     Active Substance: INFLIXIMAB
     Indication: RHEUMATOID ARTHRITIS
     Dosage: 52 WEEKS
     Route: 042
     Dates: start: 20050301
  3. NADOLOL. [Suspect]
     Active Substance: NADOLOL
     Indication: VARICES OESOPHAGEAL
     Dosage: HALF TABLET EVERY 2ND DAY
     Route: 065
  4. CODEINE PHOSPHATE [Concomitant]
     Active Substance: CODEINE PHOSPHATE
     Route: 065
  5. METOCLOPRAMIDE. [Concomitant]
     Active Substance: METOCLOPRAMIDE
     Route: 065
  6. SYMBICORT [Concomitant]
     Active Substance: BUDESONIDE\FORMOTEROL FUMARATE DIHYDRATE
     Route: 065
  7. TECTA [Concomitant]
     Active Substance: PANTOPRAZOLE MAGNESIUM
     Route: 065
  8. REMICADE [Suspect]
     Active Substance: INFLIXIMAB
     Indication: RHEUMATOID ARTHRITIS
     Route: 042
     Dates: start: 20150630
  9. NADOLOL. [Suspect]
     Active Substance: NADOLOL
     Indication: VARICES OESOPHAGEAL
     Dosage: HALF TABLET EVERY 2ND DAY
     Route: 065
     Dates: start: 20150520
  10. MAGNESIUM [Concomitant]
     Active Substance: MAGNESIUM
     Route: 065

REACTIONS (5)
  - Hepatic cirrhosis [Not Recovered/Not Resolved]
  - Lung consolidation [Not Recovered/Not Resolved]
  - Varices oesophageal [Not Recovered/Not Resolved]
  - Productive cough [Recovered/Resolved]
  - Cough [Not Recovered/Not Resolved]

NARRATIVE: CASE EVENT DATE: 2014
